FAERS Safety Report 21772858 (Version 5)
Quarter: 2025Q4

REPORT INFORMATION
  Report Type: Spontaneous
  Country: US (occurrence: US)
  Receive Date: 20221223
  Receipt Date: 20251214
  Transmission Date: 20260118
  Serious: No
  Sender: PFIZER
  Company Number: US-PFIZER INC-PV202200085507

PATIENT
  Age: 70 Year
  Sex: Female
  Weight: 81.6 kg

DRUGS (3)
  1. IBRANCE [Suspect]
     Active Substance: PALBOCICLIB
     Indication: Breast cancer female
     Dosage: DAILY FOR 21 OF 28 DAY CYCLE
     Dates: start: 20220718
  2. IBRANCE [Suspect]
     Active Substance: PALBOCICLIB
     Dosage: ONE TABLET DAILY FOR 21 DAYS THEN OFF FOR 7 DAYS, REPEAT
     Route: 048
  3. IBRANCE [Suspect]
     Active Substance: PALBOCICLIB
     Dosage: 100 MG, CYCLIC (TAKE ONE TABLET ONCE DAILY FOR 21 DAYS, BY 7 DAYS OFF, THEN REPEAT)
     Route: 048

REACTIONS (1)
  - Malaise [Unknown]
